FAERS Safety Report 9778288 (Version 1)
Quarter: 2013Q4

REPORT INFORMATION
  Report Type: Report from Study
  Country: JP (occurrence: JP)
  Receive Date: 20131223
  Receipt Date: 20131223
  Transmission Date: 20140711
  Serious: Yes (Death)
  Sender: FDA-Public Use
  Company Number: JP-PFIZER INC-2013364833

PATIENT
  Age: 83 Year
  Sex: Male

DRUGS (2)
  1. ESTRACYT [Suspect]
     Indication: PROSTATE CANCER
     Dosage: 626.8 MG, DAILY
     Route: 048
     Dates: start: 20120928, end: 20121008
  2. ZOLADEX [Concomitant]
     Dosage: UNK
     Dates: start: 20120222, end: 20120928

REACTIONS (1)
  - Death [Fatal]
